FAERS Safety Report 19627437 (Version 1)
Quarter: 2021Q3

REPORT INFORMATION
  Report Type: Spontaneous
  Country: US (occurrence: US)
  Receive Date: 20210729
  Receipt Date: 20210729
  Transmission Date: 20211014
  Serious: Yes (Other)
  Sender: FDA-Public Use
  Company Number: None

PATIENT
  Age: 80 Year
  Sex: Male
  Weight: 85.5 kg

DRUGS (2)
  1. TIMOLOL MAL 0,5% EYE DROPS [Suspect]
     Active Substance: TIMOLOL MALEATE
     Indication: GLAUCOMA
     Dosage: ?          QUANTITY:25 DAY;?
     Route: 047
     Dates: start: 20210722, end: 20210724
  2. LATANOPROST. [Concomitant]
     Active Substance: LATANOPROST

REACTIONS (9)
  - Memory impairment [None]
  - Excessive eye blinking [None]
  - Confusional state [None]
  - Heart rate decreased [None]
  - Speech disorder [None]
  - Impaired driving ability [None]
  - Vision blurred [None]
  - Sinus operation [None]
  - Muscular weakness [None]

NARRATIVE: CASE EVENT DATE: 20210722
